FAERS Safety Report 5773489-3 (Version None)
Quarter: 2008Q2

REPORT INFORMATION
  Report Type: 
  Country: None (occurrence: None)
  Receive Date: 20080616
  Receipt Date: 20080306
  Transmission Date: 20081010
  Serious: No
  Sender: FDA-Public Use
  Company Number: US-BAYER-200811086BCC

PATIENT
  Age: 56 Year
  Sex: Female
  Weight: 82 kg

DRUGS (3)
  1. ALEVE (CAPLET) [Suspect]
     Indication: SPINAL OSTEOARTHRITIS
     Dosage: TOTAL DAILY DOSE: 440 MG  UNIT DOSE: 220 MG
     Route: 048
     Dates: start: 20080201
  2. ONE A DAY WOMEN'S 50 PLUS [Suspect]
  3. UNKNOWN ANTIOXIDANT VITAMIN [Concomitant]

REACTIONS (4)
  - CHROMATURIA [None]
  - FAECES DISCOLOURED [None]
  - HAIR TEXTURE ABNORMAL [None]
  - STOMACH DISCOMFORT [None]
